FAERS Safety Report 13575676 (Version 1)
Quarter: 2017Q2

REPORT INFORMATION
  Report Type: Spontaneous
  Country: US (occurrence: US)
  Receive Date: 20170524
  Receipt Date: 20170524
  Transmission Date: 20170830
  Serious: No
  Sender: FDA-Public Use
  Company Number: US-ACCORD-048334

PATIENT
  Age: 63 Year
  Sex: Male

DRUGS (1)
  1. QUETIAPINE ACCORD [Suspect]
     Active Substance: QUETIAPINE
     Indication: INSOMNIA
     Dosage: QD, 2 TABLETS AND 1/2
     Route: 048

REACTIONS (3)
  - Diplopia [Unknown]
  - Drug ineffective [Unknown]
  - Vision blurred [Unknown]

NARRATIVE: CASE EVENT DATE: 201612
